FAERS Safety Report 11145317 (Version 2)
Quarter: 2015Q2

REPORT INFORMATION
  Report Type: Spontaneous
  Country: DE (occurrence: DE)
  Receive Date: 20150528
  Receipt Date: 20150609
  Transmission Date: 20150821
  Serious: Yes (Hospitalization, Other)
  Sender: FDA-Public Use
  Company Number: DE-BAYER-2015-034565

PATIENT
  Age: 82 Year
  Sex: Male
  Weight: 81 kg

DRUGS (12)
  1. MOVICOL [Concomitant]
     Active Substance: POLYETHYLENE GLYCOL 3350\POTASSIUM CHLORIDE\SODIUM BICARBONATE\SODIUM CHLORIDE
     Dosage: 1 DF, QD
  2. XOFIGO [Suspect]
     Active Substance: RADIUM RA-223 DICHLORIDE
     Indication: METASTASES TO BONE
  3. NOVAMINSULFON-RATIOPHARM [Concomitant]
     Active Substance: METAMIZOLE
     Dosage: 40 GTT, PRN
  4. PANTOPRAZOLE SODIUM [Concomitant]
     Dosage: 20 MG, QD
  5. TARGIN [Concomitant]
     Active Substance: NALOXONE HYDROCHLORIDE\OXYCODONE HYDROCHLORIDE
     Indication: PAIN
     Dosage: 1 DF, TID
  6. BISOHEXAL [Concomitant]
     Active Substance: BISOPROLOL FUMARATE
     Dosage: 2.5 MG, QD
  7. XOFIGO [Suspect]
     Active Substance: RADIUM RA-223 DICHLORIDE
     Indication: PROSTATE CANCER METASTATIC
     Dosage: 4.28 MBQ, Q1MON
     Route: 042
     Dates: start: 20150204, end: 20150204
  8. ABNOBAVISCUM [Concomitant]
     Dosage: 20 MG, QOD
  9. DEKRISTOL [Concomitant]
     Active Substance: CHOLECALCIFEROL
     Dosage: 500 ?G, QD
  10. CLOPIDOGREL [Concomitant]
     Active Substance: CLOPIDOGREL BISULFATE
     Dosage: 111.85 MG, QD
  11. HYPERICUM [Concomitant]
     Active Substance: ST. JOHN^S WORT
     Dosage: 20 GTT, BID
  12. CYNT [Concomitant]
     Active Substance: MOXONIDINE
     Dosage: 0.3 MG, BID

REACTIONS (6)
  - Fall [None]
  - Fatigue [None]
  - Asthenia [None]
  - Leukopenia [Recovered/Resolved]
  - Arthralgia [None]
  - Balance disorder [None]

NARRATIVE: CASE EVENT DATE: 20150224
